FAERS Safety Report 11591853 (Version 1)
Quarter: 2015Q4

REPORT INFORMATION
  Report Type: Spontaneous
  Country: US (occurrence: US)
  Receive Date: 20151005
  Receipt Date: 20151005
  Transmission Date: 20160304
  Serious: No
  Sender: FDA-Public Use
  Company Number: US-ASTRAZENECA-2015SE93419

PATIENT
  Sex: Male
  Weight: 106.1 kg

DRUGS (7)
  1. FISH OIL [Concomitant]
     Active Substance: FISH OIL
     Route: 065
  2. SAW PALMETTO [Concomitant]
     Active Substance: SAW PALMETTO
     Indication: PROSTATE CANCER
     Route: 065
  3. MULTI VITAMIN [Concomitant]
     Active Substance: VITAMINS
     Route: 065
  4. METOPROLOL SUCCINATE. [Suspect]
     Active Substance: METOPROLOL SUCCINATE
     Indication: HYPERTENSION
     Route: 048
     Dates: start: 201303
  5. GARLIC. [Concomitant]
     Active Substance: GARLIC
     Route: 065
  6. MAGNESIUM [Concomitant]
     Active Substance: MAGNESIUM
     Route: 065
  7. BABY ASPIRIN [Concomitant]
     Active Substance: ASPIRIN
     Route: 065

REACTIONS (11)
  - Polyuria [Unknown]
  - Dizziness [Unknown]
  - Weight decreased [Unknown]
  - Troponin increased [Unknown]
  - Heart rate irregular [Unknown]
  - Hypertension [Unknown]
  - Heart rate decreased [Unknown]
  - Hypertension [Recovering/Resolving]
  - Blood pressure decreased [Unknown]
  - Drug dose omission [Unknown]
  - Intentional product misuse [Unknown]
